FAERS Safety Report 14575893 (Version 1)
Quarter: 2018Q1

REPORT INFORMATION
  Report Type: Spontaneous
  Country: GB (occurrence: GB)
  Receive Date: 20180227
  Receipt Date: 20180227
  Transmission Date: 20180509
  Serious: Yes (Hospitalization, Other)
  Sender: FDA-Public Use
  Company Number: GB-ALVOGEN-2015-ALVOGEN-014656

PATIENT
  Age: 71 Year
  Sex: Female
  Weight: 67 kg

DRUGS (11)
  1. LISINOPRIL. [Suspect]
     Active Substance: LISINOPRIL
     Indication: HYPERTENSION
     Dates: start: 20150610, end: 20150704
  2. LISINOPRIL. [Suspect]
     Active Substance: LISINOPRIL
     Indication: HYPERTENSION
     Dates: start: 20150708
  3. SILDENAFIL. [Concomitant]
     Active Substance: SILDENAFIL
     Indication: PULMONARY ARTERIAL HYPERTENSION
     Dates: start: 20140522
  4. NIFEDIPINE. [Suspect]
     Active Substance: NIFEDIPINE
     Indication: HYPERTENSION
     Dates: end: 20150704
  5. LISINOPRIL. [Suspect]
     Active Substance: LISINOPRIL
     Indication: HYPERTENSION
     Dates: end: 20150610
  6. ALLOPURINOL. [Concomitant]
     Active Substance: ALLOPURINOL
     Indication: GOUT
     Dates: start: 20150601
  7. FUROSEMIDE. [Concomitant]
     Active Substance: FUROSEMIDE
     Indication: PULMONARY ARTERIAL HYPERTENSION
     Dates: start: 20150427
  8. NAPROXEN. [Suspect]
     Active Substance: NAPROXEN
     Indication: GOUT
     Dates: start: 20150521, end: 20150528
  9. NAPROXEN. [Suspect]
     Active Substance: NAPROXEN
     Indication: GOUT
     Dates: start: 20150624, end: 20150703
  10. PLACEBO [Suspect]
     Active Substance: UNSPECIFIED INGREDIENT
     Indication: PULMONARY ARTERIAL HYPERTENSION
     Route: 048
     Dates: start: 20150112
  11. OMEPRAZOLE. [Concomitant]
     Active Substance: OMEPRAZOLE
     Indication: PRODUCT USED FOR UNKNOWN INDICATION
     Dates: start: 201502

REACTIONS (4)
  - Dizziness [Recovered/Resolved]
  - Acute kidney injury [Recovered/Resolved]
  - Oedema peripheral [Recovered/Resolved]
  - Drug ineffective [Unknown]

NARRATIVE: CASE EVENT DATE: 20150624
